FAERS Safety Report 9117945 (Version 1)
Quarter: 2013Q1

REPORT INFORMATION
  Report Type: Spontaneous
  Country: IN (occurrence: IN)
  Receive Date: 20130225
  Receipt Date: 20130225
  Transmission Date: 20140127
  Serious: Yes (Other)
  Sender: FDA-Public Use
  Company Number: PHHY2012IN116920

PATIENT
  Sex: 0

DRUGS (15)
  1. CICLOSPORIN [Suspect]
     Route: 064
  2. AZATHIOPRINE [Suspect]
     Route: 064
  3. PREDNISOLONE [Suspect]
     Route: 064
  4. FOLINIC ACID [Suspect]
     Route: 064
  5. FOLINIC ACID [Suspect]
     Route: 064
  6. METHYLDOPA [Suspect]
     Route: 064
  7. ACETYLSALICYLIC ACID [Suspect]
  8. RANITIDINE [Suspect]
     Route: 064
  9. RANITIDINE [Suspect]
     Route: 064
  10. ONDANSETRON [Suspect]
     Route: 064
  11. ONDANSETRON [Suspect]
     Route: 064
  12. MORPHINE [Suspect]
     Route: 064
  13. BUPIVACAINE [Suspect]
     Route: 064
  14. HYDROCORTISONE [Suspect]
     Route: 064
  15. HEMATINIC [Suspect]
     Route: 064

REACTIONS (2)
  - Low birth weight baby [Unknown]
  - Foetal exposure during pregnancy [Unknown]
